FAERS Safety Report 5964473-5 (Version None)
Quarter: 2008Q4

REPORT INFORMATION
  Report Type: 
  Country: None (occurrence: None)
  Receive Date: 20081122
  Receipt Date: 20081122
  Transmission Date: 20090506
  Serious: Yes (Hospitalization, Other)
  Sender: FDA-Public Use
  Company Number: None

PATIENT
  Age: 52 Year
  Sex: Female
  Weight: 80.7403 kg

DRUGS (1)
  1. ESCITALOPRAM [Suspect]
     Indication: DEPRESSION
     Dosage: 28 MGS. 1 DAILY AT NIGHT PROTOCOL NO. SCT MD-50
     Dates: start: 20080711, end: 20080911

REACTIONS (6)
  - EYE IRRITATION [None]
  - FUNGAL INFECTION [None]
  - INFLUENZA LIKE ILLNESS [None]
  - LETHARGY [None]
  - MIGRAINE [None]
  - URINARY TRACT INFECTION [None]
